FAERS Safety Report 7949089-3 (Version None)
Quarter: 2011Q4

REPORT INFORMATION
  Report Type: 
  Country: None (occurrence: None)
  Receive Date: 20111130
  Receipt Date: 20110922
  Transmission Date: 20120403
  Serious: No
  Sender: FDA-Public Use
  Company Number: US-BRISTOL-MYERS SQUIBB COMPANY-15960313

PATIENT
  Age: 53 Year
  Sex: Female

DRUGS (19)
  1. METHOCARBAMOL [Concomitant]
     Route: 048
     Dates: start: 20090714
  2. RANITIDINE HCL [Concomitant]
     Dosage: TABS
     Route: 048
     Dates: start: 20110303
  3. VITAMIN B-12 [Concomitant]
     Dosage: TABS
     Route: 048
     Dates: start: 20100921
  4. LIPITOR [Concomitant]
     Route: 048
     Dates: start: 20110630
  5. KOMBIGLYZE XR [Suspect]
     Indication: TYPE 2 DIABETES MELLITUS
     Dates: start: 20110720
  6. LYRICA [Concomitant]
     Route: 048
     Dates: start: 20101108
  7. SYNTHROID [Concomitant]
     Route: 048
     Dates: start: 20110630
  8. ASPIRIN [Concomitant]
     Dosage: ASPIRIN EC LO-DOSE
     Route: 048
     Dates: start: 20110720
  9. ATENOLOL [Concomitant]
     Dosage: TABS
     Dates: start: 20091130
  10. GLIMEPIRIDE [Concomitant]
     Dosage: TABS
     Dates: start: 20110328
  11. NASONEX [Concomitant]
     Dates: start: 20090714
  12. NEXIUM [Concomitant]
     Dates: start: 20090714
  13. CALCIUM CARBONATE [Concomitant]
     Dates: start: 20090714
  14. CRANBERRY [Concomitant]
     Route: 048
     Dates: start: 20000101
  15. VITAMIN D [Concomitant]
     Dosage: 1DF= 1000 UNITS
     Route: 048
     Dates: start: 20110720
  16. TRAMADOL HCL [Concomitant]
     Dosage: 1 TO 2 TABS EVERY 6HRS 3 TIMES A DAY
     Dates: start: 20090707
  17. TRIAMTERENE AND HYDROCHLOROTHIAZIDE [Concomitant]
     Dosage: 1DF= 37.5-25MG CAPS
     Dates: start: 20110303
  18. CHONDROITIN SULFATE + GLUCOSAMINE [Concomitant]
     Dosage: 1DF=750-600 UNITS NOS
     Route: 048
     Dates: start: 20090714
  19. PROAIR HFA [Concomitant]
     Dosage: 2PUFFS EVERY 4 HRS
     Dates: start: 20090714

REACTIONS (2)
  - NAUSEA [None]
  - MALAISE [None]
